FAERS Safety Report 17235920 (Version 1)
Quarter: 2020Q1

REPORT INFORMATION
  Report Type: Spontaneous
  Country: US (occurrence: US)
  Receive Date: 20200106
  Receipt Date: 20200106
  Transmission Date: 20200409
  Serious: No
  Sender: FDA-Public Use
  Company Number: US-DRREDDYS-USA/USA/19/0117995

PATIENT
  Sex: Female
  Weight: 56.7 kg

DRUGS (2)
  1. ASPIRIN/CAFFEINE/SALICYLAMIDE [Concomitant]
     Active Substance: ASPIRIN\CAFFEINE\SALICYLAMIDE
     Indication: PRODUCT USED FOR UNKNOWN INDICATION
  2. OMEPRAZOLE MAGNESIUM DELAYED RELEASE OTC [Suspect]
     Active Substance: OMEPRAZOLE MAGNESIUM
     Indication: GASTROOESOPHAGEAL REFLUX DISEASE
     Route: 048
     Dates: start: 2019, end: 20191231

REACTIONS (1)
  - Inappropriate schedule of product administration [Unknown]
